FAERS Safety Report 25531877 (Version 1)
Quarter: 2025Q3

REPORT INFORMATION
  Report Type: Spontaneous
  Country: GB (occurrence: GB)
  Receive Date: 20250709
  Receipt Date: 20250709
  Transmission Date: 20251021
  Serious: Yes (Other)
  Sender: ELI LILLY AND COMPANY
  Company Number: None

PATIENT
  Age: 48 Year
  Sex: Female

DRUGS (1)
  1. MOUNJARO [Suspect]
     Active Substance: TIRZEPATIDE
     Indication: Weight control
     Route: 065
     Dates: start: 20220306, end: 20220506

REACTIONS (2)
  - Rectal haemorrhage [Recovered/Resolved with Sequelae]
  - Inflammatory bowel disease [Unknown]

NARRATIVE: CASE EVENT DATE: 20220506
